FAERS Safety Report 24728039 (Version 1)
Quarter: 2024Q4

REPORT INFORMATION
  Report Type: Report from Study
  Country: US (occurrence: US)
  Receive Date: 20241212
  Receipt Date: 20241212
  Transmission Date: 20250115
  Serious: Yes (Death)
  Sender: NOVARTIS
  Company Number: US-002147023-NVSC2024US234713

PATIENT
  Age: 68 Year
  Sex: Male
  Weight: 99.773 kg

DRUGS (4)
  1. LEQVIO [Suspect]
     Active Substance: INCLISIRAN SODIUM
     Indication: Hyperlipidaemia
     Dosage: 284 MG (1ST INJECTION, 3 MONTHS AND EVERY 6 MONTHS THEREAFTER)
     Route: 058
  2. LEQVIO [Suspect]
     Active Substance: INCLISIRAN SODIUM
     Indication: Type IIa hyperlipidaemia
     Dosage: 1 MG (284/1.5 MG/ML), OTHER (1ST INJECTION)
     Route: 058
     Dates: start: 20240117
  3. LEQVIO [Suspect]
     Active Substance: INCLISIRAN SODIUM
     Dosage: 1 MG,(284/1.5 MG/ML) OTHER 3MONTHS LATER 2 INJECTION
     Route: 058
  4. LEQVIO [Suspect]
     Active Substance: INCLISIRAN SODIUM
     Dosage: 1 MG, (284/1.5 MG/ML) OTHER  6 MONTHS AFTER 3 INJECTIO
     Route: 058

REACTIONS (1)
  - Death [Fatal]

NARRATIVE: CASE EVENT DATE: 20241126
